FAERS Safety Report 21172589 (Version 1)
Quarter: 2022Q3

REPORT INFORMATION
  Report Type: Spontaneous
  Country: US (occurrence: None)
  Receive Date: 20220803
  Receipt Date: 20220803
  Transmission Date: 20221027
  Serious: No
  Sender: FDA-Public Use
  Company Number: None

PATIENT
  Age: 75 Year
  Sex: Female

DRUGS (1)
  1. TERIPARATIDE [Suspect]
     Active Substance: TERIPARATIDE
     Dosage: FREQUENCY : DAILY;?
     Route: 058
     Dates: start: 202107

REACTIONS (6)
  - Asthenia [None]
  - Fatigue [None]
  - Nausea [None]
  - Back pain [None]
  - Blood calcium increased [None]
  - Renal impairment [None]

NARRATIVE: CASE EVENT DATE: 20220601
